FAERS Safety Report 5689279-6 (Version None)
Quarter: 2008Q1

REPORT INFORMATION
  Report Type: 
  Country: None (occurrence: None)
  Receive Date: 20080331
  Receipt Date: 20080319
  Transmission Date: 20080703
  Serious: Yes (Hospitalization, Other)
  Sender: FDA-Public Use
  Company Number: CA-ELI_LILLY_AND_COMPANY-CA200712000595

PATIENT
  Sex: Female

DRUGS (18)
  1. FORTEO [Suspect]
     Indication: OSTEOPOROSIS
     Dosage: 20 UG, DAILY (1/D)
     Route: 058
     Dates: start: 20071110, end: 20080101
  2. FORTEO [Suspect]
     Dosage: 20 UG, DAILY (1/D)
     Route: 058
     Dates: start: 20080101
  3. TYLENOL (CAPLET) [Concomitant]
     Indication: ARTHRALGIA
     Dosage: 650 MG, 3/D
     Route: 048
     Dates: start: 20060101
  4. GABAPENTIN [Concomitant]
     Dosage: 300 MG, UNK
  5. VITAMIN D [Concomitant]
     Dosage: 1000 IU, DAILY (1/D)
     Route: 048
  6. TRAVOPROST [Concomitant]
  7. WARFARIN SODIUM [Concomitant]
     Dosage: 2 MG, DAILY (1/D)
     Route: 048
     Dates: start: 19940101
  8. SALBUTAMOL [Concomitant]
  9. ZOPICLONE [Concomitant]
  10. CENTRUM                            /00554501/ [Concomitant]
  11. PANTOLOC                           /01263201/ [Concomitant]
     Dosage: 40 MG, 2/D
  12. NORVASC [Concomitant]
     Dosage: 7.5 MG, DAILY (1/D)
     Route: 048
  13. NORVASC [Concomitant]
     Dosage: 5 MG, DAILY (1/D)
  14. AVAPRO [Concomitant]
     Indication: HYPERTENSION
     Dosage: 150 MG, DAILY (1/D)
     Dates: start: 20080101
  15. METOPROLOL TARTRATE [Concomitant]
     Dosage: 100 MG, 2/D
     Route: 048
  16. METOPROLOL TARTRATE [Concomitant]
     Dosage: 100 MG, DAILY (1/D)
     Route: 048
  17. CALCIUM CARBONATE [Concomitant]
     Dosage: 1250 MG, 2/D
     Route: 048
  18. ACE INHIBITOR NOS [Concomitant]
     Indication: HYPERTENSION
     Dates: end: 20080101

REACTIONS (4)
  - BIFASCICULAR BLOCK [None]
  - CARDIAC FAILURE CONGESTIVE [None]
  - CHRONIC OBSTRUCTIVE PULMONARY DISEASE [None]
  - PNEUMONIA [None]
